FAERS Safety Report 12051064 (Version 1)
Quarter: 2016Q1

REPORT INFORMATION
  Report Type: Spontaneous
  Country: FR (occurrence: FR)
  Receive Date: 20160208
  Receipt Date: 20160208
  Transmission Date: 20160526
  Serious: Yes (Other)
  Sender: FDA-Public Use
  Company Number: FR-LABORATOIRE HRA PHARMA-1047496

PATIENT
  Age: 34 Year
  Sex: Female

DRUGS (1)
  1. ELLA [Suspect]
     Active Substance: ULIPRISTAL ACETATE
     Route: 048
     Dates: start: 20151217

REACTIONS (3)
  - Blighted ovum [None]
  - Unintended pregnancy [None]
  - Abortion induced [None]
